FAERS Safety Report 5404660-8 (Version None)
Quarter: 2007Q3

REPORT INFORMATION
  Report Type: 
  Country: None (occurrence: None)
  Receive Date: 20070731
  Receipt Date: 20070717
  Transmission Date: 20080115
  Serious: Yes (Other)
  Sender: FDA-Public Use
  Company Number: 158953ISR

PATIENT
  Age: 45 Year
  Sex: Female

DRUGS (4)
  1. DOXYCYCLINE [Suspect]
     Dosage: (100 MG)
     Dates: start: 19930101
  2. ANALGESICS [Concomitant]
  3. ANAESTHETICS [Concomitant]
  4. TRACHIUM [Concomitant]

REACTIONS (14)
  - BONE DISORDER [None]
  - BURNING SENSATION [None]
  - CHONDROPATHY [None]
  - COUGH [None]
  - DYSPEPSIA [None]
  - FATIGUE [None]
  - FEELING COLD [None]
  - HEADACHE [None]
  - HYPERSENSITIVITY [None]
  - INFLUENZA [None]
  - MUSCLE DISORDER [None]
  - NAUSEA [None]
  - PAIN [None]
  - THYROID DISORDER [None]
